FAERS Safety Report 18280770 (Version 1)
Quarter: 2020Q3

REPORT INFORMATION
  Report Type: Spontaneous
  Country: US (occurrence: US)
  Receive Date: 20200917
  Receipt Date: 20200917
  Transmission Date: 20201103
  Serious: No
  Sender: FDA-Public Use
  Company Number: US-ASTRAZENECA-2020SF16279

PATIENT
  Sex: Female
  Weight: 61.2 kg

DRUGS (5)
  1. BEVESPI AEROSPHERE [Suspect]
     Active Substance: FORMOTEROL FUMARATE\GLYCOPYRROLATE
     Indication: CHRONIC OBSTRUCTIVE PULMONARY DISEASE
     Dosage: ONE INHALATION TWICE A DAY
     Route: 055
     Dates: start: 2019
  2. BEVESPI AEROSPHERE [Suspect]
     Active Substance: FORMOTEROL FUMARATE\GLYCOPYRROLATE
     Indication: CHRONIC OBSTRUCTIVE PULMONARY DISEASE
     Dosage: FIRST DEVICE (ONE INHALATION TWICE A DAY)
     Route: 055
     Dates: start: 20200607
  3. ALBUTEROL. [Concomitant]
     Active Substance: ALBUTEROL
     Route: 055
  4. BEVESPI AEROSPHERE [Suspect]
     Active Substance: FORMOTEROL FUMARATE\GLYCOPYRROLATE
     Indication: CHRONIC OBSTRUCTIVE PULMONARY DISEASE
     Dosage: SECOND DEVICE (ONE INHALATION TWICE A DAY)
     Route: 055
     Dates: start: 20200707
  5. BEVESPI AEROSPHERE [Suspect]
     Active Substance: FORMOTEROL FUMARATE\GLYCOPYRROLATE
     Indication: CHRONIC OBSTRUCTIVE PULMONARY DISEASE
     Dosage: THIRD DEVICE (ONE INHALATION TWICE A DAY)
     Route: 055
     Dates: start: 20200805

REACTIONS (5)
  - Device issue [Unknown]
  - Intentional device misuse [Unknown]
  - Product dose omission issue [Unknown]
  - Dysphonia [Unknown]
  - Cough [Unknown]
